FAERS Safety Report 25720442 (Version 1)
Quarter: 2025Q3

REPORT INFORMATION
  Report Type: Spontaneous
  Country: EU (occurrence: EU)
  Receive Date: 20250825
  Receipt Date: 20250825
  Transmission Date: 20251021
  Serious: Yes (Hospitalization)
  Sender: CHEPLAPHARM
  Company Number: None

PATIENT
  Age: 29 Year
  Sex: Male
  Weight: 102 kg

DRUGS (13)
  1. CLONAZEPAM [Interacting]
     Active Substance: CLONAZEPAM
     Indication: Suicidal ideation
     Dosage: 60 TABLETS?DAILY DOSE: 1 MILLIGRAM
     Route: 048
     Dates: start: 20190416, end: 20250709
  2. CLONAZEPAM [Interacting]
     Active Substance: CLONAZEPAM
     Indication: Borderline personality disorder
     Dosage: 60 TABLETS?DAILY DOSE: 1 MILLIGRAM
     Route: 048
     Dates: start: 20190416, end: 20250709
  3. CLONAZEPAM [Interacting]
     Active Substance: CLONAZEPAM
     Indication: Suicidal ideation
     Route: 048
     Dates: start: 20250710, end: 20250710
  4. CLONAZEPAM [Interacting]
     Active Substance: CLONAZEPAM
     Indication: Borderline personality disorder
     Route: 048
     Dates: start: 20250710, end: 20250710
  5. LYRICA [Interacting]
     Active Substance: PREGABALIN
     Indication: Borderline personality disorder
     Dosage: 84 CAPSULES?DAILY DOSE: 100 MILLIGRAM
     Route: 048
     Dates: start: 20241205, end: 20250709
  6. LYRICA [Interacting]
     Active Substance: PREGABALIN
     Indication: Suicidal ideation
     Dosage: 84 CAPSULES?DAILY DOSE: 100 MILLIGRAM
     Route: 048
     Dates: start: 20241205, end: 20250709
  7. LYRICA [Interacting]
     Active Substance: PREGABALIN
     Indication: Borderline personality disorder
     Route: 048
     Dates: start: 20250710, end: 20250710
  8. LYRICA [Interacting]
     Active Substance: PREGABALIN
     Indication: Suicidal ideation
     Route: 048
     Dates: start: 20250710, end: 20250710
  9. SERTRALINE HYDROCHLORIDE [Interacting]
     Active Substance: SERTRALINE HYDROCHLORIDE
     Indication: Borderline personality disorder
     Dosage: 30 TABLETS?DAILY DOSE: 200 MILLIGRAM
     Route: 048
     Dates: start: 20241125, end: 20250709
  10. SERTRALINE HYDROCHLORIDE [Interacting]
     Active Substance: SERTRALINE HYDROCHLORIDE
     Indication: Suicidal ideation
     Dosage: 30 TABLETS?DAILY DOSE: 200 MILLIGRAM
     Route: 048
     Dates: start: 20241125, end: 20250709
  11. SERTRALINE HYDROCHLORIDE [Interacting]
     Active Substance: SERTRALINE HYDROCHLORIDE
     Indication: Borderline personality disorder
     Route: 048
     Dates: start: 20250710, end: 20250710
  12. SERTRALINE HYDROCHLORIDE [Interacting]
     Active Substance: SERTRALINE HYDROCHLORIDE
     Indication: Suicidal ideation
     Route: 048
     Dates: start: 20250710, end: 20250710
  13. ARIPIPRAZOLE [Suspect]
     Active Substance: ARIPIPRAZOLE
     Dosage: DAILY DOSE: 1 DOSAGE FORM

REACTIONS (5)
  - Electrocardiogram QT prolonged [Recovered/Resolved]
  - Somnolence [Recovered/Resolved]
  - Respiratory depression [Recovered/Resolved]
  - Intentional overdose [Recovered/Resolved]
  - Suicidal ideation [Unknown]

NARRATIVE: CASE EVENT DATE: 20250710
